FAERS Safety Report 5590835-4 (Version None)
Quarter: 2008Q1

REPORT INFORMATION
  Report Type: 
  Country: None (occurrence: None)
  Receive Date: 20080110
  Receipt Date: 20071228
  Transmission Date: 20080703
  Serious: Yes (Hospitalization)
  Sender: FDA-Public Use
  Company Number: TCI2007A06883

PATIENT
  Age: 69 Year
  Sex: Female

DRUGS (4)
  1. ACTOS [Suspect]
     Indication: TYPE 2 DIABETES MELLITUS
     Dosage: 15 MG (15 MG,1 D)
     Route: 048
  2. LIPITOR [Suspect]
     Indication: HYPERLIPIDAEMIA
     Dosage: 10 MG (10 MG, 1 IN D)
     Route: 048
  3. BASEN (VOGLIBOSE) [Concomitant]
  4. AMARYL [Concomitant]

REACTIONS (3)
  - DIARRHOEA [None]
  - RHABDOMYOLYSIS [None]
  - VOMITING [None]
